FAERS Safety Report 21727665 (Version 3)
Quarter: 2023Q1

REPORT INFORMATION
  Report Type: Spontaneous
  Country: IN (occurrence: IN)
  Receive Date: 20221214
  Receipt Date: 20230120
  Transmission Date: 20230418
  Serious: Yes (Other)
  Sender: FDA-Public Use
  Company Number: IN-PFIZER INC-202100918445

PATIENT
  Age: 60 Year
  Sex: Female

DRUGS (7)
  1. PALBOCICLIB [Suspect]
     Active Substance: PALBOCICLIB
     Dosage: 125 MG, 1X/DAY
     Route: 048
     Dates: start: 20210522
  2. PALBOCICLIB [Suspect]
     Active Substance: PALBOCICLIB
     Dosage: 125 MG, 1X/DAY
     Route: 048
     Dates: start: 202106
  3. PALBOCICLIB [Suspect]
     Active Substance: PALBOCICLIB
     Dosage: 125 MG CYCLIC (21 DAYS ON AND 7 DAYS OFF)
     Dates: start: 20210529
  4. FULVESTRANT [Concomitant]
     Active Substance: FULVESTRANT
     Dosage: 500 MG (250MG IN EACH BUTTOCK), ON D1, D14, D28
     Route: 030
  5. FULVESTRANT [Concomitant]
     Active Substance: FULVESTRANT
     Dosage: UNK (D15)
     Dates: start: 20210612
  6. ZOLEDRONIC ACID [Concomitant]
     Active Substance: ZOLEDRONIC ACID
     Dosage: 4 MG (WITH 100ML NS), EVERY 4 WEEKLY
     Route: 042
  7. CALCIUM\CHOLECALCIFEROL [Concomitant]
     Active Substance: CALCIUM\CHOLECALCIFEROL
     Dosage: 500 MG, 1X/DAY

REACTIONS (15)
  - Blood calcium decreased [Unknown]
  - White blood cell count decreased [Unknown]
  - Spinal osteoarthritis [Unknown]
  - Depression [Unknown]
  - Cough [Unknown]
  - Dyspnoea [Unknown]
  - Anxiety [Unknown]
  - Platelet count decreased [Unknown]
  - Haemoglobin decreased [Unknown]
  - Blood glucose increased [Unknown]
  - Performance status decreased [Unknown]
  - Neutrophil count decreased [Unknown]
  - Gastric disorder [Unknown]
  - Diarrhoea [Unknown]
  - Malaise [Unknown]

NARRATIVE: CASE EVENT DATE: 20221201
